FAERS Safety Report 9199400 (Version 5)
Quarter: 2013Q4

REPORT INFORMATION
  Report Type: Spontaneous
  Country: FR (occurrence: None)
  Receive Date: 20130326
  Receipt Date: 20131105
  Transmission Date: 20140711
  Serious: Yes (Hospitalization)
  Sender: FDA-Public Use
  Company Number: 2013FR001362

PATIENT
  Age: 56 Year
  Sex: Male
  Weight: 87 kg

DRUGS (3)
  1. PONATINIB [Suspect]
     Indication: CHRONIC MYELOID LEUKAEMIA
     Route: 048
     Dates: start: 20121227, end: 20130312
  2. AMLODIPINE (AMLODIPINE MALEATE) [Concomitant]
  3. STAGID (METFORMIN EMBONATE) [Concomitant]

REACTIONS (4)
  - Transient ischaemic attack [None]
  - VIth nerve paralysis [None]
  - Hypertension [None]
  - Cerebral infarction [None]
